FAERS Safety Report 5118267-3 (Version None)
Quarter: 2006Q4

REPORT INFORMATION
  Report Type: 
  Country: None (occurrence: None)
  Receive Date: 20061002
  Receipt Date: 20060728
  Transmission Date: 20070319
  Serious: No
  Sender: FDA-Public Use
  Company Number: US-BRISTOL-MYERS SQUIBB COMPANY-13459714

PATIENT
  Age: 69 Year
  Sex: Female
  Weight: 61 kg

DRUGS (3)
  1. ORENCIA [Suspect]
     Route: 042
     Dates: start: 20060101
  2. PREDNISONE [Concomitant]
  3. XANAX [Concomitant]

REACTIONS (2)
  - DEPRESSION [None]
  - NAUSEA [None]
